FAERS Safety Report 14999449 (Version 1)
Quarter: 2018Q2

REPORT INFORMATION
  Report Type: Spontaneous
  Country: US (occurrence: US)
  Receive Date: 20180612
  Receipt Date: 20180612
  Transmission Date: 20180711
  Serious: No
  Sender: FDA-Public Use
  Company Number: US-PFIZER INC-2018237807

PATIENT
  Age: 46 Year
  Sex: Female

DRUGS (1)
  1. IBRANCE [Suspect]
     Active Substance: PALBOCICLIB
     Indication: BREAST CANCER FEMALE
     Dosage: 125 MG, CYCLIC (DAILY FOR 21 DAYS STRAIGHT FOLLOWED BY 7 DAY/FOR 21 DAYS AND A WEEK OFF)
     Route: 048
     Dates: start: 201805

REACTIONS (3)
  - Pruritus [Unknown]
  - Photosensitivity reaction [Unknown]
  - Fatigue [Unknown]
